FAERS Safety Report 4973432-0 (Version None)
Quarter: 2006Q2

REPORT INFORMATION
  Report Type: 
  Country: None (occurrence: None)
  Receive Date: 20060410
  Receipt Date: 20051010
  Transmission Date: 20061013
  Serious: Yes (Death, Hospitalization)
  Sender: FDA-Public Use
  Company Number: MED-05065

PATIENT
  Age: 76 Year
  Sex: Female

DRUGS (1)
  1. TRAMADOL HCL [Suspect]
     Dosage: 1BID PRN PAIN

REACTIONS (7)
  - ABDOMINAL PAIN [None]
  - CONFUSIONAL STATE [None]
  - CONSTIPATION [None]
  - DELIRIUM [None]
  - DIALYSIS [None]
  - INFECTION [None]
  - ORAL INTAKE REDUCED [None]
